FAERS Safety Report 9596678 (Version 2)
Quarter: 2013Q4

REPORT INFORMATION
  Report Type: Spontaneous
  Country: GB (occurrence: GB)
  Receive Date: 20131004
  Receipt Date: 20131008
  Transmission Date: 20140711
  Serious: Yes (Other)
  Sender: FDA-Public Use
  Company Number: GB-ASTRAZENECA-2013SE72181

PATIENT
  Age: 34 Year
  Sex: Female

DRUGS (14)
  1. OMEPRAZOLE [Suspect]
     Indication: DYSPEPSIA
     Route: 048
     Dates: start: 20130806, end: 20130816
  2. OMEPRAZOLE [Suspect]
     Indication: REGURGITATION
     Route: 048
     Dates: start: 20130806, end: 20130816
  3. GLIMEPIRIDE [Suspect]
     Indication: TYPE 2 DIABETES MELLITUS
     Route: 048
     Dates: start: 20130802, end: 20130816
  4. CLOZARIL [Suspect]
     Indication: SCHIZOAFFECTIVE DISORDER
     Route: 048
     Dates: start: 20130702
  5. CLOZARIL [Suspect]
     Indication: SCHIZOAFFECTIVE DISORDER
     Route: 048
     Dates: start: 20130703
  6. CLOZARIL [Suspect]
     Indication: SCHIZOAFFECTIVE DISORDER
     Route: 048
  7. CLOZARIL [Suspect]
     Indication: SCHIZOAFFECTIVE DISORDER
     Route: 048
     Dates: end: 20130815
  8. CLOZARIL [Suspect]
     Indication: SCHIZOAFFECTIVE DISORDER
     Route: 048
     Dates: end: 20130923
  9. BECLOMETHASONE DIPROPIONATE [Concomitant]
  10. LAXIDE [Concomitant]
     Indication: CONSTIPATION
  11. METFORMIN [Concomitant]
     Indication: TYPE 2 DIABETES MELLITUS
     Route: 048
  12. OLANZAPINE [Concomitant]
  13. PROMETHAZINE [Concomitant]
     Indication: INSOMNIA
     Route: 048
     Dates: start: 20130516
  14. SODIUM VALPROATE [Concomitant]
     Indication: MOOD SWINGS
     Route: 048

REACTIONS (6)
  - Antipsychotic drug level increased [Recovered/Resolved]
  - Differential white blood cell count abnormal [Not Recovered/Not Resolved]
  - Eosinophil count increased [Unknown]
  - Dizziness [Recovered/Resolved]
  - Nausea [Recovered/Resolved]
  - Hepatic enzyme increased [Recovering/Resolving]
